FAERS Safety Report 18397469 (Version 1)
Quarter: 2020Q4

REPORT INFORMATION
  Report Type: Spontaneous
  Country: US (occurrence: US)
  Receive Date: 20201019
  Receipt Date: 20201019
  Transmission Date: 20210114
  Serious: No
  Sender: FDA-Public Use
  Company Number: US-KYOWAKIRIN-2020BKK016702

PATIENT

DRUGS (1)
  1. CRYSVITA [Suspect]
     Active Substance: BUROSUMAB-TWZA
     Indication: PRODUCT USED FOR UNKNOWN INDICATION
     Dosage: 10 MG, 1X/2 WEEKS
     Route: 058

REACTIONS (3)
  - Toothache [Unknown]
  - Pain in jaw [Unknown]
  - Headache [Unknown]

NARRATIVE: CASE EVENT DATE: 20201009
